FAERS Safety Report 16113499 (Version 2)
Quarter: 2021Q2

REPORT INFORMATION
  Report Type: Spontaneous
  Country: US (occurrence: US)
  Receive Date: 20190325
  Receipt Date: 20210413
  Transmission Date: 20210716
  Serious: No
  Sender: FDA-Public Use
  Company Number: US-ALLERGAN-1839775US

PATIENT
  Age: 33 Year
  Sex: Female
  Weight: 45.35 kg

DRUGS (3)
  1. EYELINER [Concomitant]
     Dosage: UNK
     Route: 065
  2. MASCARA [Concomitant]
     Dosage: UNK
     Route: 065
  3. LATISSE [Suspect]
     Active Substance: BIMATOPROST
     Indication: GROWTH OF EYELASHES
     Dosage: 2 GTT, QHS (3?4 TIMES IN WEEK/USED 4?5 NIGHTS A WEEK, SOMETIMES USES 2 DROPS)
     Route: 061
     Dates: start: 2010

REACTIONS (5)
  - Drug ineffective [Unknown]
  - Incorrect dose administered [Unknown]
  - Inappropriate schedule of product administration [Unknown]
  - Wrong technique in product usage process [Unknown]
  - Madarosis [Not Recovered/Not Resolved]

NARRATIVE: CASE EVENT DATE: 201803
